FAERS Safety Report 10208981 (Version 1)
Quarter: 2014Q2

REPORT INFORMATION
  Report Type: Report from Study
  Country: BR (occurrence: BR)
  Receive Date: 20140530
  Receipt Date: 20140530
  Transmission Date: 20141212
  Serious: Yes (Other)
  Sender: FDA-Public Use
  Company Number: PHHY2014BR064571

PATIENT
  Sex: Female

DRUGS (1)
  1. OMNITROPE [Suspect]
     Indication: BLOOD GROWTH HORMONE
     Dosage: 1.0 MG, QD
     Route: 058
     Dates: start: 201401

REACTIONS (2)
  - Upper limb fracture [Unknown]
  - Fall [Unknown]
